FAERS Safety Report 8877361 (Version 2)
Quarter: 2013Q3

REPORT INFORMATION
  Report Type: Spontaneous
  Country: US (occurrence: US)
  Receive Date: 20121023
  Receipt Date: 20130930
  Transmission Date: 20140515
  Serious: No
  Sender: FDA-Public Use
  Company Number: US-AMGEN-USASP2012059747

PATIENT
  Age: 68 Year
  Sex: Female

DRUGS (5)
  1. ENBREL [Suspect]
     Indication: RHEUMATOID ARTHRITIS
     Dosage: 50 MG, QWK
     Route: 058
     Dates: start: 20070614, end: 201209
  2. LEFLUNOMIDE [Concomitant]
     Dosage: UNK, FOR 3 OR 4 MONTHS
  3. METHOTREXATE [Concomitant]
     Dosage: UNK
  4. ORENCIA [Concomitant]
     Dosage: UNK
  5. XELJANZ [Concomitant]
     Dosage: UNK

REACTIONS (8)
  - Joint swelling [Not Recovered/Not Resolved]
  - Inflammation [Recovered/Resolved]
  - Rheumatoid nodule [Not Recovered/Not Resolved]
  - Musculoskeletal pain [Not Recovered/Not Resolved]
  - Local swelling [Not Recovered/Not Resolved]
  - Tendonitis [Not Recovered/Not Resolved]
  - Weight decreased [Recovered/Resolved]
  - Drug effect decreased [Not Recovered/Not Resolved]
